FAERS Safety Report 9687014 (Version 2)
Quarter: 2013Q4

REPORT INFORMATION
  Report Type: Spontaneous
  Country: US (occurrence: US)
  Receive Date: 20131113
  Receipt Date: 20131218
  Transmission Date: 20140711
  Serious: Yes (Hospitalization, Other)
  Sender: FDA-Public Use
  Company Number: US-GILEAD-2013-0087500

PATIENT
  Age: 62 Year
  Sex: Male

DRUGS (3)
  1. LETAIRIS [Suspect]
     Indication: PRODUCT USED FOR UNKNOWN INDICATION
     Dosage: 10 MG, QD
     Route: 048
     Dates: start: 20130613
  2. REVATIO [Concomitant]
  3. TYVASO [Concomitant]

REACTIONS (12)
  - Hepatocellular carcinoma [Unknown]
  - Blood pressure decreased [Unknown]
  - Syncope [Unknown]
  - Renal impairment [Unknown]
  - Fluid retention [Unknown]
  - Dyspnoea [Unknown]
  - Weight decreased [Unknown]
  - Oedema [Unknown]
  - Weight increased [Unknown]
  - Dizziness [Unknown]
  - Nausea [Unknown]
  - Asthenia [Unknown]
